FAERS Safety Report 25923270 (Version 2)
Quarter: 2025Q4

REPORT INFORMATION
  Report Type: Report from Study
  Country: EG (occurrence: EG)
  Receive Date: 20251015
  Receipt Date: 20251018
  Transmission Date: 20260118
  Serious: Yes (Hospitalization)
  Sender: NOVARTIS
  Company Number: EG-002147023-NVSC2025EG159759

PATIENT
  Sex: Male

DRUGS (2)
  1. ENTRESTO [Suspect]
     Active Substance: SACUBITRIL\VALSARTAN
     Indication: Cardiac failure
     Dosage: 50 MG, BID, OTHER
     Route: 048
     Dates: start: 202409
  2. ENTRESTO [Suspect]
     Active Substance: SACUBITRIL\VALSARTAN
     Dosage: 50 MG, OTHER (HALF TABLET OF ENTRESTO 50MG TWICE DAILY)
     Route: 048

REACTIONS (4)
  - Syncope [Unknown]
  - Oedema [Unknown]
  - Wrong technique in product usage process [Unknown]
  - Off label use [Unknown]
